FAERS Safety Report 21516569 (Version 1)
Quarter: 2022Q4

REPORT INFORMATION
  Report Type: Spontaneous
  Country: JP (occurrence: JP)
  Receive Date: 20221027
  Receipt Date: 20221027
  Transmission Date: 20230113
  Serious: Yes (Other)
  Sender: FDA-Public Use
  Company Number: JP-SA-2022SA428100

PATIENT
  Age: 20 Year
  Sex: Male
  Weight: 75 kg

DRUGS (1)
  1. FABRAZYME [Suspect]
     Active Substance: AGALSIDASE BETA
     Indication: Product used for unknown indication
     Dosage: 75 PER DAY
     Route: 041

REACTIONS (2)
  - Cerebral infarction [Recovering/Resolving]
  - Condition aggravated [Unknown]

NARRATIVE: CASE EVENT DATE: 20220301
